FAERS Safety Report 5104273-1 (Version None)
Quarter: 2006Q3

REPORT INFORMATION
  Report Type: 
  Country: None (occurrence: None)
  Receive Date: 20060912
  Receipt Date: 20060912
  Transmission Date: 20061208
  Serious: Yes (Other)
  Sender: FDA-Public Use
  Company Number: None

PATIENT
  Age: 57 Year
  Sex: Male
  Weight: 160 kg

DRUGS (2)
  1. CUBICIN [Suspect]
     Indication: WOUND INFECTION STAPHYLOCOCCAL
     Dosage: 650 MG   EVERY 48 HOURS   IV (NOS)
     Route: 042
     Dates: start: 20060816, end: 20060824
  2. CUBICIN [Suspect]
     Indication: WOUND INFECTION STAPHYLOCOCCAL
     Dosage: 500 MG   DAILY   IV (NOS)
     Route: 042
     Dates: start: 20060825, end: 20060829

REACTIONS (2)
  - RENAL FAILURE ACUTE [None]
  - RESPIRATORY DISORDER [None]
